FAERS Safety Report 6037389-6 (Version None)
Quarter: 2009Q1

REPORT INFORMATION
  Report Type: 
  Country: None (occurrence: None)
  Receive Date: 20090114
  Receipt Date: 20081226
  Transmission Date: 20090719
  Serious: Yes (Other)
  Sender: FDA-Public Use
  Company Number: CA-PFIZER INC-2008096068

PATIENT

DRUGS (1)
  1. LYRICA [Suspect]
     Indication: PAIN
     Route: 048
     Dates: start: 20070101, end: 20071201

REACTIONS (4)
  - DRUG INEFFECTIVE [None]
  - LUNG DISORDER [None]
  - POLLAKIURIA [None]
  - WEIGHT INCREASED [None]
